FAERS Safety Report 18744331 (Version 1)
Quarter: 2021Q1

REPORT INFORMATION
  Report Type: Report from Study
  Country: AR (occurrence: AR)
  Receive Date: 20210115
  Receipt Date: 20210115
  Transmission Date: 20210419
  Serious: Yes (Death, Other)
  Sender: FDA-Public Use
  Company Number: AR-AMGEN-ARGSL2019005982

PATIENT
  Age: 71 Year
  Sex: Male

DRUGS (6)
  1. VECTIBIX [Suspect]
     Active Substance: PANITUMUMAB
     Dosage: UNK UNK, Q3WK (EVERY 21DAYS)
     Route: 065
  2. VECTIBIX [Suspect]
     Active Substance: PANITUMUMAB
     Indication: COLORECTAL CANCER METASTATIC
     Dosage: UNK UNK, Q2WK
     Route: 065
     Dates: start: 20181211
  3. VECTIBIX [Suspect]
     Active Substance: PANITUMUMAB
     Dosage: UNK UNK, Q3WK
     Route: 065
     Dates: start: 2019
  4. VECTIBIX [Suspect]
     Active Substance: PANITUMUMAB
     Dosage: UNK UNK, Q2WK
     Route: 065
     Dates: start: 2019, end: 20200106
  5. VECTIBIX [Suspect]
     Active Substance: PANITUMUMAB
     Dosage: UNK UNK, Q3WK
     Route: 065
     Dates: start: 20200106
  6. VECTIBIX [Suspect]
     Active Substance: PANITUMUMAB
     Dosage: UNK UNK, Q2WK
     Route: 065

REACTIONS (25)
  - Scab [Not Recovered/Not Resolved]
  - White blood cell count decreased [Not Recovered/Not Resolved]
  - Abdominal pain upper [Unknown]
  - Skin injury [Not Recovered/Not Resolved]
  - Diarrhoea [Unknown]
  - Chest pain [Unknown]
  - Blood potassium decreased [Recovered/Resolved]
  - Dry skin [Not Recovered/Not Resolved]
  - Off label use [Unknown]
  - Death [Fatal]
  - Depressed mood [Not Recovered/Not Resolved]
  - Fatigue [Unknown]
  - Asthenia [Unknown]
  - Blood pressure decreased [Unknown]
  - Laboratory test abnormal [Unknown]
  - Rash [Not Recovered/Not Resolved]
  - Infection [Unknown]
  - Pain in extremity [Unknown]
  - Oral mucosal blistering [Not Recovered/Not Resolved]
  - Insomnia [Unknown]
  - Pyrexia [Not Recovered/Not Resolved]
  - Discoloured vomit [Unknown]
  - Decreased immune responsiveness [Not Recovered/Not Resolved]
  - Hypoaesthesia [Unknown]
  - Acne [Not Recovered/Not Resolved]

NARRATIVE: CASE EVENT DATE: 201812
